FAERS Safety Report 9092670 (Version 1)
Quarter: 2013Q1

REPORT INFORMATION
  Report Type: Spontaneous
  Country: US (occurrence: US)
  Receive Date: 20130131
  Receipt Date: 20130131
  Transmission Date: 20140127
  Serious: Yes (Hospitalization, Other)
  Sender: FDA-Public Use
  Company Number: US-SANOFI-AVENTIS-2013SA007222

PATIENT
  Sex: Male

DRUGS (1)
  1. LANTUS [Suspect]
     Indication: TYPE 2 DIABETES MELLITUS
     Dosage: 50-52 UNITS ONCE A DAY.
     Route: 058

REACTIONS (4)
  - Myocardial infarction [Unknown]
  - Dementia Alzheimer^s type [Unknown]
  - Aggression [Unknown]
  - Anger [Unknown]
